FAERS Safety Report 7544074-8 (Version None)
Quarter: 2011Q2

REPORT INFORMATION
  Report Type: 
  Country: None (occurrence: None)
  Receive Date: 20110613
  Receipt Date: 20060206
  Transmission Date: 20111010
  Serious: Yes (Hospitalization, Other)
  Sender: FDA-Public Use
  Company Number: PHFR2005IE03968

PATIENT
  Sex: Male

DRUGS (3)
  1. COVERSYL PLUS [Suspect]
     Indication: HYPERTENSION
     Dosage: UNK, UNK
     Route: 065
     Dates: start: 20051130, end: 20051202
  2. CLOZAPINE [Suspect]
     Indication: SCHIZOPHRENIA
     Dosage: UNK, UNK
     Route: 048
     Dates: start: 20050711
  3. VENLAFAXINE [Concomitant]
     Dosage: 225 MG, QD
     Route: 065

REACTIONS (4)
  - BLOOD SODIUM DECREASED [None]
  - MENTAL DISORDER [None]
  - HYPERTENSION [None]
  - BLOOD POTASSIUM DECREASED [None]
